FAERS Safety Report 8575451-4 (Version None)
Quarter: 2012Q3

REPORT INFORMATION
  Report Type: 
  Country: None (occurrence: None)
  Receive Date: 20120807
  Receipt Date: 20120801
  Transmission Date: 20120928
  Serious: Yes (Other)
  Sender: FDA-Public Use
  Company Number: PHHY2012JP067494

PATIENT
  Age: 90 Year
  Sex: Female

DRUGS (6)
  1. AMLODIPINE [Concomitant]
  2. LANSOPRAZOLE [Concomitant]
  3. RIVASTIGMINE [Suspect]
     Indication: DEMENTIA ALZHEIMER'S TYPE
     Dosage: 4.5 MG, ONCE A DAY
     Route: 062
     Dates: start: 20120711, end: 20120720
  4. KETOPROFEN [Concomitant]
  5. ENALAPRIL MALEATE [Concomitant]
  6. RIVASTIGMINE [Suspect]
     Dosage: UNK
     Route: 062

REACTIONS (2)
  - LOSS OF CONSCIOUSNESS [None]
  - EYE MOVEMENT DISORDER [None]
